FAERS Safety Report 7670127-X (Version None)
Quarter: 2011Q3

REPORT INFORMATION
  Report Type: 
  Country: None (occurrence: None)
  Receive Date: 20110808
  Receipt Date: 20110729
  Transmission Date: 20111222
  Serious: Yes (Hospitalization)
  Sender: FDA-Public Use
  Company Number: IT-ASTRAZENECA-2011SE45940

PATIENT
  Age: 68 Year
  Sex: Female

DRUGS (9)
  1. DULOXETIME HYDROCHLORIDE [Interacting]
     Indication: STRESS URINARY INCONTINENCE
     Route: 048
  2. ASPIRIN [Concomitant]
  3. NEBIVOLOL HCL [Concomitant]
  4. OMEPRAZOLE [Suspect]
     Route: 048
  5. VALSARTAN [Concomitant]
  6. DOXAZOSIN MESYLATE [Concomitant]
  7. RISEDRONATE SODIUM [Concomitant]
  8. HEPARIN [Concomitant]
  9. METFORMIN HCL [Concomitant]

REACTIONS (2)
  - DRUG INTERACTION [None]
  - STRESS CARDIOMYOPATHY [None]
